FAERS Safety Report 6678029-2 (Version None)
Quarter: 2010Q2

REPORT INFORMATION
  Report Type: 
  Country: None (occurrence: None)
  Receive Date: 20100409
  Receipt Date: 20100409
  Transmission Date: 20101027
  Serious: Yes (Life-Threatening, Hospitalization)
  Sender: FDA-Public Use
  Company Number: None

PATIENT
  Sex: Female
  Weight: 72.1219 kg

DRUGS (1)
  1. LEVAQUIN [Suspect]
     Indication: SINUSITIS
     Dosage: 1 PILL 2/DAY ORAL
     Route: 048
     Dates: start: 20100228

REACTIONS (5)
  - COUGH [None]
  - LIP SWELLING [None]
  - SWELLING FACE [None]
  - THROAT TIGHTNESS [None]
  - WHEEZING [None]
